FAERS Safety Report 22148737 (Version 1)
Quarter: 2023Q1

REPORT INFORMATION
  Report Type: Spontaneous
  Country: US (occurrence: US)
  Receive Date: 20230328
  Receipt Date: 20230328
  Transmission Date: 20230418
  Serious: No
  Sender: FDA-Public Use
  Company Number: US-CTI BIOPHARMA-2023US03422

PATIENT

DRUGS (35)
  1. VONJO [Suspect]
     Active Substance: PACRITINIB
     Indication: Myelofibrosis
     Dosage: 200 MG, BID
     Route: 048
     Dates: start: 20220401
  2. ALLOPURINOL [Concomitant]
     Active Substance: ALLOPURINOL
  3. AMOXICILLIN [Concomitant]
     Active Substance: AMOXICILLIN
  4. B COMPLEX [AMINOBENZOIC ACID;BIOTIN;CALCIUM PANTOTHENATE;CHOLINE BITAR [Concomitant]
  5. OMEGA-3 FATTY ACIDS [Concomitant]
     Active Substance: OMEGA-3 FATTY ACIDS
  6. BEETROOT [Concomitant]
  7. CACAO MINAR [Concomitant]
  8. COLCHICINE [Concomitant]
     Active Substance: COLCHICINE
  9. METHYLPREDNISOLONE [Concomitant]
     Active Substance: METHYLPREDNISOLONE
  10. COLLAGEN [Concomitant]
     Active Substance: COLLAGEN
  11. LUTEIN + [Concomitant]
  12. VITAMIN E [Concomitant]
     Active Substance: .ALPHA.-TOCOPHEROL
  13. COENZYME Q10 [Concomitant]
     Active Substance: DIETARY SUPPLEMENT\UBIDECARENONE
  14. CREATINE [Concomitant]
     Active Substance: CREATINE
  15. CALCIUM [Concomitant]
     Active Substance: CALCIUM
  16. COPPER GLUCONATE [Concomitant]
     Active Substance: COPPER GLUCONATE
  17. GLUTAMINE [ALANYL GLUTAMINE] [Concomitant]
  18. HAWTHORNE BERRY [Concomitant]
  19. LOPERAMIDE [Concomitant]
     Active Substance: LOPERAMIDE
  20. GOLDENSEAL ROOT [HYDRASTIS CANADENSIS] [Concomitant]
  21. LOPERAMIDE HYDROCHLORIDE [Concomitant]
     Active Substance: LOPERAMIDE HYDROCHLORIDE
  22. POTASSIUM CITRATE [Concomitant]
     Active Substance: POTASSIUM CITRATE
  23. GRAPESEED [Concomitant]
  24. HYDROCHLOROTHIAZIDE [Concomitant]
     Active Substance: HYDROCHLOROTHIAZIDE
  25. VITAMIN D NOS [Concomitant]
     Active Substance: VITAMIN D NOS
  26. ZINC [Concomitant]
     Active Substance: ZINC
  27. PROBIOTICS NOS [Concomitant]
     Active Substance: PROBIOTICS NOS
  28. REBLOZYL [LUSPATERCEPT AAMT] [Concomitant]
  29. DIETARY SUPPLEMENT\RESVERATROL [Concomitant]
     Active Substance: DIETARY SUPPLEMENT\RESVERATROL
  30. UBIQUINOL [Concomitant]
     Active Substance: UBIQUINOL
  31. PROCHLORPERAZINE [Concomitant]
     Active Substance: PROCHLORPERAZINE
  32. WHEATGRASS [NUTRIENTS NOS] [Concomitant]
  33. VITAMIN C [Concomitant]
     Active Substance: ASCORBIC ACID
  34. TYLENOL [Concomitant]
     Active Substance: ACETAMINOPHEN
  35. CHERRY [Concomitant]
     Active Substance: CHERRY

REACTIONS (1)
  - Swelling face [Not Recovered/Not Resolved]
